FAERS Safety Report 7177072-7 (Version None)
Quarter: 2010Q4

REPORT INFORMATION
  Report Type: 
  Country: None (occurrence: None)
  Receive Date: 20101216
  Receipt Date: 20101216
  Transmission Date: 20110411
  Serious: No
  Sender: FDA-Public Use
  Company Number: None

PATIENT
  Age: 31 Year
  Sex: Female
  Weight: 70.3075 kg

DRUGS (1)
  1. ZYRTEC [Suspect]
     Dosage: 10MG DAILY PO
     Route: 048
     Dates: start: 20080101, end: 20101212

REACTIONS (3)
  - DRUG DEPENDENCE [None]
  - ORAL PRURITUS [None]
  - PRURITUS [None]
